FAERS Safety Report 24847641 (Version 3)
Quarter: 2025Q2

REPORT INFORMATION
  Report Type: Report from Study
  Country: CA (occurrence: CA)
  Receive Date: 20250116
  Receipt Date: 20250620
  Transmission Date: 20250717
  Serious: Yes (Other)
  Sender: TAKEDA
  Company Number: CA-TAKEDA-2024TUS054856

PATIENT
  Age: 59 Year
  Sex: Male

DRUGS (3)
  1. VEDOLIZUMAB [Suspect]
     Active Substance: VEDOLIZUMAB
     Indication: Crohn^s disease
  2. VEDOLIZUMAB [Suspect]
     Active Substance: VEDOLIZUMAB
     Indication: Crohn^s disease
     Dosage: 108 MILLIGRAM, Q2WEEKS
     Dates: start: 20240717
  3. AMLODIPINE [Concomitant]
     Active Substance: AMLODIPINE BESYLATE

REACTIONS (21)
  - Hypothermia [Recovering/Resolving]
  - Pneumonia [Unknown]
  - Pain [Recovered/Resolved]
  - Hand fracture [Unknown]
  - Accident [Unknown]
  - Faeces soft [Unknown]
  - Weight decreased [Unknown]
  - Myalgia [Unknown]
  - Gastrointestinal pain [Unknown]
  - Sensitive skin [Unknown]
  - Burns second degree [Unknown]
  - Injury [Recovering/Resolving]
  - Pulmonary mass [Unknown]
  - Abdominal pain [Not Recovered/Not Resolved]
  - Dizziness [Unknown]
  - Feeling cold [Unknown]
  - Chills [Unknown]
  - Herpes zoster [Unknown]
  - Headache [Unknown]
  - Nausea [Unknown]
  - Fatigue [Unknown]

NARRATIVE: CASE EVENT DATE: 20241101
